FAERS Safety Report 11064868 (Version 2)
Quarter: 2015Q2

REPORT INFORMATION
  Report Type: Spontaneous
  Country: US (occurrence: US)
  Receive Date: 20150424
  Receipt Date: 20150524
  Transmission Date: 20150821
  Serious: No
  Sender: FDA-Public Use
  Company Number: US-JNJFOC-20150206392

PATIENT
  Age: 4 Year
  Sex: Female

DRUGS (1)
  1. METHYLPHENIDATE HYDROCHLORIDE (WATSON) [Suspect]
     Active Substance: METHYLPHENIDATE HYDROCHLORIDE
     Indication: PRODUCT USED FOR UNKNOWN INDICATION
     Dosage: 10 MG TABLET; ONE AND A HALF TABLETS TWICE A DAY AND A HALF OF A TABLET AT BEDTIME.
     Route: 048
     Dates: start: 20141012

REACTIONS (5)
  - Wrong technique in drug usage process [Unknown]
  - Adverse event [Unknown]
  - Drug prescribing error [Unknown]
  - Product use issue [Unknown]
  - Inappropriate schedule of drug administration [Unknown]

NARRATIVE: CASE EVENT DATE: 20141012
